FAERS Safety Report 12240242 (Version 3)
Quarter: 2017Q4

REPORT INFORMATION
  Report Type: Spontaneous
  Country: US (occurrence: US)
  Receive Date: 20160405
  Receipt Date: 20171019
  Transmission Date: 20180320
  Serious: Yes (Other)
  Sender: FDA-Public Use
  Company Number: US-ASTRAZENECA-2016SE34994

PATIENT
  Age: 68 Year
  Sex: Male

DRUGS (13)
  1. BYDUREON [Suspect]
     Active Substance: EXENATIDE
     Indication: TYPE 2 DIABETES MELLITUS
     Route: 058
     Dates: start: 20160325
  2. FISH OIL [Concomitant]
     Active Substance: FISH OIL
  3. CRESTOR [Suspect]
     Active Substance: ROSUVASTATIN CALCIUM
     Indication: BLOOD CHOLESTEROL ABNORMAL
     Route: 048
     Dates: start: 2006
  4. VITAMIN D [Concomitant]
     Active Substance: CHOLECALCIFEROL
  5. GLIMEPIRIDE. [Concomitant]
     Active Substance: GLIMEPIRIDE
  6. ALLOPURINOL. [Concomitant]
     Active Substance: ALLOPURINOL
  7. BYDUREON [Suspect]
     Active Substance: EXENATIDE
     Indication: TYPE 2 DIABETES MELLITUS
     Route: 058
     Dates: start: 2015
  8. CRESTOR [Suspect]
     Active Substance: ROSUVASTATIN CALCIUM
     Indication: BLOOD CHOLESTEROL ABNORMAL
     Route: 048
     Dates: start: 2006
  9. BYDUREON [Suspect]
     Active Substance: EXENATIDE
     Indication: TYPE 2 DIABETES MELLITUS
     Route: 058
     Dates: start: 2015
  10. LAMOTRIGINE. [Concomitant]
     Active Substance: LAMOTRIGINE
  11. CLOPIDOGREL [Concomitant]
     Active Substance: CLOPIDOGREL BISULFATE
  12. LOSARTAN. [Concomitant]
     Active Substance: LOSARTAN
  13. CENTRUM SILVER [Concomitant]
     Active Substance: MINERALS\VITAMINS

REACTIONS (11)
  - Erectile dysfunction [Unknown]
  - Neoplasm malignant [Unknown]
  - Melanoma recurrent [Unknown]
  - Cerebrovascular accident [Unknown]
  - Hypertension [Unknown]
  - Tinnitus [Unknown]
  - Nephrolithiasis [Unknown]
  - Injection site haemorrhage [Recovered/Resolved]
  - Device malfunction [Unknown]
  - Memory impairment [Unknown]
  - Drug dose omission [Unknown]

NARRATIVE: CASE EVENT DATE: 2008
